FAERS Safety Report 21701385 (Version 2)
Quarter: 2023Q1

REPORT INFORMATION
  Report Type: Other
  Country: DE (occurrence: DE)
  Receive Date: 20221208
  Receipt Date: 20230130
  Transmission Date: 20230417
  Serious: Yes (Other)
  Sender: FDA-Public Use
  Company Number: DE-ROCHE-3235788

PATIENT
  Age: 43 Year
  Sex: Female
  Weight: 98.5 kg

DRUGS (19)
  1. OCREVUS [Suspect]
     Active Substance: OCRELIZUMAB
     Indication: Relapsing-remitting multiple sclerosis
     Route: 042
     Dates: start: 20191205
  2. OCREVUS [Suspect]
     Active Substance: OCRELIZUMAB
     Route: 042
     Dates: start: 20191219
  3. OCREVUS [Suspect]
     Active Substance: OCRELIZUMAB
     Dosage: DATE OF TREATMENT: 03/DEC/2020 (ONCE IN 175 DAYS)
     Route: 042
     Dates: start: 20200611
  4. OCREVUS [Suspect]
     Active Substance: OCRELIZUMAB
     Dosage: 6TH MAINTENANCE DOSE ON 12.01.2023.
     Route: 042
     Dates: start: 20210701
  5. OCREVUS [Suspect]
     Active Substance: OCRELIZUMAB
     Route: 042
     Dates: start: 20191205
  6. OCREVUS [Suspect]
     Active Substance: OCRELIZUMAB
     Route: 042
     Dates: start: 20191219
  7. OCREVUS [Suspect]
     Active Substance: OCRELIZUMAB
     Dosage: DATE OF TREATMENT: 03/DEC/2020 (ONCE IN 175 DAYS)
     Route: 042
     Dates: start: 20200611
  8. OCREVUS [Suspect]
     Active Substance: OCRELIZUMAB
     Route: 042
     Dates: start: 20210701
  9. NABIXIMOLS [Suspect]
     Active Substance: NABIXIMOLS
     Indication: Neck pain
     Route: 065
     Dates: end: 202110
  10. NABIXIMOLS [Suspect]
     Active Substance: NABIXIMOLS
     Route: 065
     Dates: end: 202110
  11. NABIXIMOLS [Suspect]
     Active Substance: NABIXIMOLS
     Route: 065
     Dates: end: 202110
  12. NABIXIMOLS [Suspect]
     Active Substance: NABIXIMOLS
     Route: 065
     Dates: end: 202110
  13. NABIXIMOLS [Suspect]
     Active Substance: NABIXIMOLS
     Route: 065
     Dates: end: 202110
  14. NABIXIMOLS [Suspect]
     Active Substance: NABIXIMOLS
     Route: 065
     Dates: end: 202110
  15. NABIXIMOLS [Suspect]
     Active Substance: NABIXIMOLS
     Route: 065
     Dates: end: 202110
  16. MODERNA COVID-19 VACCINE [Suspect]
     Active Substance: ELASOMERAN
     Indication: COVID-19 prophylaxis
     Dosage: FIRST DOSE
     Route: 065
     Dates: start: 20210414
  17. MODERNA COVID-19 VACCINE [Suspect]
     Active Substance: ELASOMERAN
     Dosage: SECOND DOSE
     Route: 065
     Dates: start: 20210526
  18. MIRTAZAPINE [Concomitant]
     Active Substance: MIRTAZAPINE
  19. PANTOPRAZOLE [Concomitant]
     Active Substance: PANTOPRAZOLE

REACTIONS (50)
  - Cardiovascular insufficiency [Recovered/Resolved]
  - Pyrexia [Recovered/Resolved]
  - White blood cell disorder [Recovered/Resolved]
  - Chills [Recovered/Resolved]
  - Memory impairment [Not Recovered/Not Resolved]
  - Diarrhoea [Recovered/Resolved]
  - Nasopharyngitis [Recovered/Resolved]
  - Pruritus [Recovered/Resolved]
  - Weight increased [Recovering/Resolving]
  - Dyspnoea [Recovered/Resolved]
  - Malaise [Recovered/Resolved]
  - Fall [Unknown]
  - Fatigue [Recovered/Resolved]
  - Headache [Recovered/Resolved]
  - Blood pressure decreased [Recovered/Resolved]
  - Body temperature increased [Recovered/Resolved]
  - Atonic urinary bladder [Not Recovered/Not Resolved]
  - Neurological examination abnormal [Not Recovered/Not Resolved]
  - Temporomandibular joint syndrome [Not Recovered/Not Resolved]
  - Stress [Recovering/Resolving]
  - Fatigue [Recovered/Resolved]
  - Melanocytic naevus [Recovered/Resolved]
  - Foot fracture [Recovered/Resolved]
  - Fear [Not Recovered/Not Resolved]
  - Gait disturbance [Recovered/Resolved]
  - Therapeutic response decreased [Recovered/Resolved]
  - Feeling hot [Recovered/Resolved]
  - Feeling cold [Recovered/Resolved]
  - Pain [Recovering/Resolving]
  - Coordination abnormal [Not Recovered/Not Resolved]
  - Pyrexia [Unknown]
  - Muscle tightness [Not Recovered/Not Resolved]
  - Fatigue [Recovered/Resolved]
  - Mental fatigue [Recovered/Resolved]
  - Neck pain [Recovering/Resolving]
  - Cardiovascular disorder [Unknown]
  - Visual impairment [Unknown]
  - Dizziness [Unknown]
  - Pain in extremity [Unknown]
  - Myalgia [Unknown]
  - Cough [Recovered/Resolved]
  - Suspected COVID-19 [Recovered/Resolved]
  - Uhthoff^s phenomenon [Recovered/Resolved]
  - Hot flush [Not Recovered/Not Resolved]
  - Acne [Not Recovered/Not Resolved]
  - Folate deficiency [Not Recovered/Not Resolved]
  - Vitamin D deficiency [Not Recovered/Not Resolved]
  - Oral herpes [Not Recovered/Not Resolved]
  - Weight decreased [Recovering/Resolving]
  - Fatigue [Recovered/Resolved]

NARRATIVE: CASE EVENT DATE: 20191205
